FAERS Safety Report 4548744-5 (Version None)
Quarter: 2004Q4

REPORT INFORMATION
  Report Type: 
  Country: None (occurrence: None)
  Receive Date: 20041222
  Receipt Date: 20031104
  Transmission Date: 20050328
  Serious: Yes (Hospitalization)
  Sender: FDA-Public Use
  Company Number: USA031151558

PATIENT
  Age: 12 Year
  Sex: Female
  Weight: 59 kg

DRUGS (2)
  1. HUMULIN-HUMAN INSULKIN (RDNA) (HUMAN INSULIN (RD [Suspect]
     Indication: DIABETES MELLITUS
     Dosage: 68 U/DAY
     Dates: start: 19990101
  2. HUMALOG [Suspect]
     Indication: DIABETES MELLITUS
     Dates: start: 19990101

REACTIONS (2)
  - HYPERGLYCAEMIA [None]
  - KETOACIDOSIS [None]
